FAERS Safety Report 15506102 (Version 1)
Quarter: 2018Q4

REPORT INFORMATION
  Report Type: Spontaneous
  Country: US (occurrence: US)
  Receive Date: 20181005
  Receipt Date: 20181005
  Transmission Date: 20190205
  Serious: No
  Sender: FDA-Public Use
  Company Number: None

PATIENT
  Age: 24 Year
  Sex: Male

DRUGS (1)
  1. SYMDEKO [Suspect]
     Active Substance: IVACAFTOR\TEZACAFTOR
     Dosage: ?          OTHER STRENGTH:100MG/150MG-150MG;?
     Route: 048
     Dates: start: 20180927

REACTIONS (1)
  - Frequent bowel movements [None]

NARRATIVE: CASE EVENT DATE: 20180928
